FAERS Safety Report 5890333-4 (Version None)
Quarter: 2008Q3

REPORT INFORMATION
  Report Type: 
  Country: None (occurrence: None)
  Receive Date: 20080918
  Receipt Date: 20080903
  Transmission Date: 20090109
  Serious: Yes (Other)
  Sender: FDA-Public Use
  Company Number: 033248

PATIENT
  Age: 27 Year
  Sex: Female

DRUGS (1)
  1. CLARAVIS [Suspect]
     Dosage: ORAL
     Route: 048
     Dates: start: 20080529

REACTIONS (4)
  - AGGRESSION [None]
  - AMNESIA [None]
  - DEPRESSED MOOD [None]
  - SUICIDAL IDEATION [None]
